FAERS Safety Report 22179126 (Version 1)
Quarter: 2023Q2

REPORT INFORMATION
  Report Type: Spontaneous
  Country: US (occurrence: None)
  Receive Date: 20230406
  Receipt Date: 20230406
  Transmission Date: 20230721
  Serious: Yes (Other)
  Sender: FDA-Public Use
  Company Number: US-ROCHE-3322167

PATIENT
  Age: 67 Year
  Sex: Female

DRUGS (1)
  1. XOLAIR [Suspect]
     Active Substance: OMALIZUMAB
     Indication: Asthma
     Dosage: VIAL, ON 10/MAR/2023 IN THE ARM
     Route: 042
     Dates: start: 202204

REACTIONS (3)
  - Flushing [Unknown]
  - Nausea [Unknown]
  - Vomiting [Unknown]
